FAERS Safety Report 8145107-0 (Version None)
Quarter: 2012Q1

REPORT INFORMATION
  Report Type: 
  Country: None (occurrence: None)
  Receive Date: 20120217
  Receipt Date: 20120212
  Transmission Date: 20120608
  Serious: Yes (Hospitalization, Other)
  Sender: FDA-Public Use
  Company Number: PHHY2011US01195

PATIENT
  Sex: Male
  Weight: 15.2 kg

DRUGS (2)
  1. EXJADE [Suspect]
     Indication: SICKLE CELL ANAEMIA
     Dosage: 250 MG, DAILY
     Route: 048
     Dates: start: 20101222
  2. EXJADE [Suspect]
     Indication: IRON OVERLOAD
     Dosage: 500 MG, DAILY

REACTIONS (6)
  - DECREASED APPETITE [None]
  - MUCOUS STOOLS [None]
  - HAEMATOCHEZIA [None]
  - DYSGEUSIA [None]
  - DIARRHOEA [None]
  - DRUG INEFFECTIVE [None]
